FAERS Safety Report 20411019 (Version 1)
Quarter: 2022Q1

REPORT INFORMATION
  Report Type: Spontaneous
  Country: US (occurrence: None)
  Receive Date: 20220201
  Receipt Date: 20220201
  Transmission Date: 20220423
  Serious: Yes (Death, Congenital Anomaly)
  Sender: FDA-Public Use
  Company Number: None

PATIENT
  Age: 31 Year
  Sex: Female

DRUGS (1)
  1. MAKENA [Suspect]
     Active Substance: HYDROXYPROGESTERONE CAPROATE
     Indication: Premature labour

REACTIONS (7)
  - Maternal exposure during pregnancy [None]
  - Foetal exposure during pregnancy [None]
  - Foetal heart rate abnormal [None]
  - Umbilical cord around neck [None]
  - Headache [None]
  - Nausea [None]
  - Injection site pain [None]

NARRATIVE: CASE EVENT DATE: 20220104
